FAERS Safety Report 4970064-5 (Version None)
Quarter: 2006Q2

REPORT INFORMATION
  Report Type: 
  Country: None (occurrence: None)
  Receive Date: 20060406
  Receipt Date: 20060321
  Transmission Date: 20061013
  Serious: Yes (Death, Other)
  Sender: FDA-Public Use
  Company Number: US-2005-023479

PATIENT
  Sex: 0

DRUGS (3)
  1. CAMPATH [Suspect]
     Indication: ORGAN TRANSPLANT
     Dosage: INTRAVENOUS
     Route: 042
  2. MYCOPHENOLATE MOFETIL [Suspect]
     Indication: ORGAN TRANSPLANT
  3. ZENAPAX [Suspect]
     Indication: ORGAN TRANSPLANT

REACTIONS (14)
  - ANAEMIA HAEMOLYTIC AUTOIMMUNE [None]
  - APLASIA PURE RED CELL [None]
  - ASPERGILLOSIS [None]
  - BK VIRUS INFECTION [None]
  - CYTOMEGALOVIRUS INFECTION [None]
  - IDIOPATHIC THROMBOCYTOPENIC PURPURA [None]
  - INFECTION [None]
  - LYMPHADENOPATHY [None]
  - LYMPHOPROLIFERATIVE DISORDER [None]
  - MYCOBACTERIAL INFECTION [None]
  - MYOCARDIAL ISCHAEMIA [None]
  - PULMONARY EMBOLISM [None]
  - SEPSIS [None]
  - ZYGOMYCOSIS [None]
